FAERS Safety Report 25573446 (Version 1)
Quarter: 2025Q3

REPORT INFORMATION
  Report Type: Spontaneous
  Country: US (occurrence: None)
  Receive Date: 20250716
  Receipt Date: 20250716
  Transmission Date: 20251021
  Serious: Yes (Hospitalization)
  Sender: FDA-CTU
  Company Number: None

PATIENT
  Age: 30 Year
  Sex: Female

DRUGS (3)
  1. PHENAZOPYRIDINE [Suspect]
     Active Substance: PHENAZOPYRIDINE
  2. KETAMINE [Suspect]
     Active Substance: KETAMINE
  3. LIDOCAINE [Suspect]
     Active Substance: LIDOCAINE

REACTIONS (2)
  - Methaemoglobinaemia [None]
  - Acute respiratory failure [None]

NARRATIVE: CASE EVENT DATE: 20250408
